FAERS Safety Report 18937777 (Version 1)
Quarter: 2021Q1

REPORT INFORMATION
  Report Type: Other
  Country: US (occurrence: US)
  Receive Date: 20210225
  Receipt Date: 20210225
  Transmission Date: 20210420
  Serious: No
  Sender: FDA-Public Use
  Company Number: US-ROCHE-2769798

PATIENT
  Sex: Female

DRUGS (1)
  1. OCREVUS [Suspect]
     Active Substance: OCRELIZUMAB
     Indication: PRIMARY PROGRESSIVE MULTIPLE SCLEROSIS
     Dosage: (PRESCRIBED: INITIAL DOSE 300 MG ONCE IN 2 WEEKS, SUBSEQUENT DOSE 600 MG EVERY 6 MONTHS)?DATES OF TR
     Route: 042

REACTIONS (1)
  - COVID-19 [Unknown]
